FAERS Safety Report 25740963 (Version 3)
Quarter: 2025Q3

REPORT INFORMATION
  Report Type: Spontaneous
  Country: US (occurrence: US)
  Receive Date: 20250829
  Receipt Date: 20250918
  Transmission Date: 20251021
  Serious: Yes (Hospitalization, Other)
  Sender: BAYER HEALTHCARE PHARMACEUTICALS INC.
  Company Number: US-BAYER-2025A113972

PATIENT
  Age: 27 Year
  Sex: Female

DRUGS (1)
  1. MIRENA [Suspect]
     Active Substance: LEVONORGESTREL
     Indication: Contraception
     Dosage: 20?G/DAY
     Route: 015
     Dates: start: 20231117, end: 20250712

REACTIONS (5)
  - Pregnancy with contraceptive device [Recovered/Resolved]
  - Drug ineffective [None]
  - Device dislocation [Recovered/Resolved]
  - Premature rupture of membranes [None]
  - Maternal exposure during pregnancy [None]

NARRATIVE: CASE EVENT DATE: 20250403
